FAERS Safety Report 20081461 (Version 1)
Quarter: 2021Q4

REPORT INFORMATION
  Report Type: Spontaneous
  Country: US (occurrence: US)
  Receive Date: 20211117
  Receipt Date: 20211117
  Transmission Date: 20220303
  Serious: Yes (Death, Hospitalization)
  Sender: FDA-Public Use
  Company Number: US-NOVARTISPH-NVSC2021US261422

PATIENT
  Age: 55 Year
  Sex: Male

DRUGS (2)
  1. RANITIDINE [Suspect]
     Active Substance: RANITIDINE
     Indication: Gastrooesophageal reflux disease
     Dosage: 75 TO 150 MG, QD
     Route: 048
     Dates: start: 200301, end: 201904
  2. RANITIDINE [Suspect]
     Active Substance: RANITIDINE
     Indication: Gastrooesophageal reflux disease
     Dosage: 75 TO 150 MG, QD
     Route: 048
     Dates: start: 200301, end: 201904

REACTIONS (5)
  - Death [Fatal]
  - Pancreatic carcinoma stage IV [Unknown]
  - Adenocarcinoma pancreas [Unknown]
  - Metastases to liver [Unknown]
  - Incorrect dose administered [Unknown]

NARRATIVE: CASE EVENT DATE: 20170927
